FAERS Safety Report 17354852 (Version 6)
Quarter: 2020Q2

REPORT INFORMATION
  Report Type: Spontaneous
  Country: US (occurrence: US)
  Receive Date: 20200131
  Receipt Date: 20200521
  Transmission Date: 20200713
  Serious: No
  Sender: FDA-Public Use
  Company Number: US-PFIZER INC-2016308630

PATIENT
  Age: 58 Year
  Sex: Female
  Weight: 91 kg

DRUGS (22)
  1. LYRICA [Suspect]
     Active Substance: PREGABALIN
     Indication: NEUROPATHY PERIPHERAL
     Dosage: 300 MG, 2X/DAY
     Route: 048
  2. LYRICA [Suspect]
     Active Substance: PREGABALIN
     Indication: FIBROMYALGIA
  3. CLONIDINE. [Concomitant]
     Active Substance: CLONIDINE
     Dosage: 556 UG, DAILY
     Dates: start: 20160330
  4. SUFENTA [Concomitant]
     Active Substance: SUFENTANIL CITRATE
     Dosage: 200 UG, DAILY
     Dates: start: 20160330
  5. LAMOTRIGINE. [Concomitant]
     Active Substance: LAMOTRIGINE
     Dosage: 250 MG, DAILY [TAKE ONE TABLET (100MG) BY ORAL ROUTE IN THE MORNING AND 1.5 AT BEDTIME]
     Route: 048
     Dates: start: 20111017
  6. MELOXICAM. [Concomitant]
     Active Substance: MELOXICAM
     Dosage: 15 MG, 1X/DAY
     Route: 048
     Dates: start: 20110927
  7. LORAZEPAM. [Concomitant]
     Active Substance: LORAZEPAM
     Dosage: 1 MG, AS NEEDED (THREE TIMES PER DAY AS NEEDED)
     Route: 048
  8. PERCOCET [Concomitant]
     Active Substance: ACETAMINOPHEN\OXYCODONE HYDROCHLORIDE
     Dosage: 7.5 MG, AS NEEDED (EVERY 8 HOURS AS NEEDED)
  9. PROMETHAZINE [Concomitant]
     Active Substance: PROMETHAZINE HYDROCHLORIDE
     Indication: NAUSEA
     Dosage: 1 DF, AS NEEDED [INSERT ONE SUPPOSITORY BY RECTAL ROUTE EVERY 8 HOURS FOR 10 DAYS PRN]
     Route: 054
     Dates: start: 20141030
  10. VENTOLIN HFA [Concomitant]
     Active Substance: ALBUTEROL SULFATE
     Dosage: UNK, AS NEEDED [INHALE TWO PUFFS BY INHALATION ROUTE EVERY 4 HOURS AS NEEDED]
     Route: 055
     Dates: start: 20111117
  11. BUPIVACAINE. [Concomitant]
     Active Substance: BUPIVACAINE
     Dosage: 13.8 MG, DAILY
     Dates: start: 20160330
  12. MORPHINE [Concomitant]
     Active Substance: MORPHINE
     Indication: SPINAL PAIN
     Dosage: UNK
  13. CLONIDINE HCL [Concomitant]
     Active Substance: CLONIDINE HYDROCHLORIDE
     Indication: BLOOD PRESSURE ABNORMAL
     Dosage: 0.1 MG, UNK
     Route: 048
     Dates: start: 20141223
  14. METFORMIN [Concomitant]
     Active Substance: METFORMIN HYDROCHLORIDE
     Dosage: 1000 MG, 1X/DAY (TWO TABLETS (1000MG) BY ORAL ROUTE ONCE DAILY WITH THE EVENING MEAL FOR 30DAYS)
     Route: 048
     Dates: start: 20111017
  15. SYNTHROID [Concomitant]
     Active Substance: LEVOTHYROXINE SODIUM
     Dosage: 50 UG, 1X/DAY
     Route: 048
  16. ZANAFLEX [Concomitant]
     Active Substance: TIZANIDINE HYDROCHLORIDE
     Dosage: 4 MG, 2X/DAY
     Route: 048
     Dates: start: 20160525
  17. CLONIDINE HCL [Concomitant]
     Active Substance: CLONIDINE HYDROCHLORIDE
     Indication: SPINAL PAIN
  18. PRAVASTATIN. [Concomitant]
     Active Substance: PRAVASTATIN
     Dosage: 20 MG, 1X/DAY [AT BEDTIME]
     Route: 048
  19. TRAZODONE [Concomitant]
     Active Substance: TRAZODONE HYDROCHLORIDE
     Dosage: UNK, 1X/DAY [TAKE 0.5-1 TABLET BY ORAL ROUTE ONCE A DAY (AT BEDTIME)]
     Route: 048
  20. ZOLOFT [Concomitant]
     Active Substance: SERTRALINE HYDROCHLORIDE
     Dosage: UNK, DAILY [TAKE 0.5-1 TABLET BY ORAL ROUTE DAILY]
     Route: 048
  21. LYRICA [Suspect]
     Active Substance: PREGABALIN
     Indication: PAIN
     Dosage: 50 MG, 1X/DAY [ONE QHS AND TITRATE PER TITRATION SCHEDULE WITH MAX DOSE OF 300MG BID]
     Route: 048
     Dates: start: 20160525
  22. PERCOCET [Concomitant]
     Active Substance: ACETAMINOPHEN\OXYCODONE HYDROCHLORIDE
     Indication: NEUROPATHY PERIPHERAL
     Dosage: 1 DF, AS NEEDED [7.5-325MG ORAL TABLET/TAKE 1 TABLET BY ORAL ROUTE EVERY EIGHT HOURS FOR 30DAYS]
     Route: 048
     Dates: start: 20160525

REACTIONS (4)
  - Gait inability [Unknown]
  - Withdrawal syndrome [Unknown]
  - Feeling abnormal [Unknown]
  - Pain in extremity [Not Recovered/Not Resolved]
